FAERS Safety Report 18164187 (Version 9)
Quarter: 2022Q2

REPORT INFORMATION
  Report Type: Report from Study
  Country: None (occurrence: US)
  Receive Date: 20200818
  Receipt Date: 20220413
  Transmission Date: 20220721
  Serious: Yes (Other)
  Sender: FDA-Public Use
  Company Number: US-AKCEA THERAPEUTICS-2020IS001335

PATIENT
  Age: 64 Year
  Sex: Female
  Weight: 76.227 kg

DRUGS (2)
  1. TEGSEDI [Suspect]
     Active Substance: INOTERSEN SODIUM
     Indication: Hereditary neuropathic amyloidosis
     Route: 058
     Dates: start: 20190401, end: 20200908
  2. DEVICE [Suspect]
     Active Substance: DEVICE

REACTIONS (5)
  - Dyspnoea [Unknown]
  - Autoimmune haemolytic anaemia [Recovering/Resolving]
  - Haemolysis [Recovering/Resolving]
  - Platelet count decreased [Unknown]
  - Fatigue [Recovering/Resolving]

NARRATIVE: CASE EVENT DATE: 20200101
